FAERS Safety Report 5904292-9 (Version None)
Quarter: 2008Q4

REPORT INFORMATION
  Report Type: 
  Country: None (occurrence: None)
  Receive Date: 20081001
  Receipt Date: 20080729
  Transmission Date: 20090506
  Serious: No
  Sender: FDA-Public Use
  Company Number: US-BRISTOL-MYERS SQUIBB COMPANY-14248355

PATIENT
  Age: 57 Year
  Sex: Female

DRUGS (2)
  1. SPRYCEL [Suspect]
     Indication: CHRONIC MYELOID LEUKAEMIA
     Dosage: DOSE DECREASED TO 50MG DAILY FROM 19JUL08
     Route: 048
     Dates: start: 20080519
  2. DYAZIDE [Concomitant]
     Indication: HYPERTENSION
     Dates: start: 20080514

REACTIONS (3)
  - BLOOD CREATININE INCREASED [None]
  - CREATININE RENAL CLEARANCE DECREASED [None]
  - HYPERTENSION [None]
